FAERS Safety Report 8776690 (Version 1)
Quarter: 2012Q4

REPORT INFORMATION
  Report Type: 
  Country: DE (occurrence: DE)
  Receive Date: 20120911
  Receipt Date: 20120911
  Transmission Date: 20130627
  Serious: Yes (Hospitalization)
  Sender: FDA-Public Use
  Company Number: DE-ELI_LILLY_AND_COMPANY-DE201209000120

PATIENT
  Age: 14 Year
  Sex: Male

DRUGS (3)
  1. STRATTERA [Suspect]
     Indication: ATTENTION DEFICIT/HYPERACTIVITY DISORDER
     Dosage: UNK mg, unknown
     Dates: start: 20120426
  2. STRATTERA [Suspect]
     Dosage: 60 mg, unknown
     Route: 048
  3. STRATTERA [Suspect]
     Dosage: 40 mg, unknown
     Route: 048

REACTIONS (3)
  - Epistaxis [Recovered/Resolved]
  - Depression [Recovered/Resolved]
  - Agitation [Recovered/Resolved]
